FAERS Safety Report 21527565 (Version 1)
Quarter: 2022Q4

REPORT INFORMATION
  Report Type: Spontaneous
  Country: CN (occurrence: CN)
  Receive Date: 20221031
  Receipt Date: 20221031
  Transmission Date: 20230112
  Serious: Yes (Hospitalization, Other)
  Sender: FDA-Public Use
  Company Number: None

PATIENT
  Age: 40 Year
  Sex: Female
  Weight: 55 kg

DRUGS (4)
  1. CYCLOPHOSPHAMIDE [Suspect]
     Active Substance: CYCLOPHOSPHAMIDE
     Indication: Breast neoplasm
     Dosage: 900 MG, ONCE DAILY, DILUTED WITH 500 ML OF SODIUM CHLORIDE.
     Route: 041
     Dates: start: 20221002, end: 20221002
  2. SODIUM CHLORIDE [Suspect]
     Active Substance: SODIUM CHLORIDE
     Indication: Medication dilution
     Dosage: ONCE DAILY, 500 ML USED TO DILUTE 900 MG CYCLOPHOSPHAMIDE.
     Route: 041
     Dates: start: 20221002, end: 20221002
  3. DEXTROSE MONOHYDRATE [Suspect]
     Active Substance: DEXTROSE MONOHYDRATE
     Indication: Medication dilution
     Dosage: ONCE DAILY, 500 ML USED TO DILUTE 75 MG PIRARUBICIN HYDROCHLORIDE, DOSAGE FORM: INJECTION
     Route: 041
     Dates: start: 20221002, end: 20221002
  4. PIRARUBICIN HYDROCHLORIDE [Suspect]
     Active Substance: PIRARUBICIN HYDROCHLORIDE
     Indication: Breast neoplasm
     Dosage: 75 MG, ONCE DAILY, DILUTED WITH 500 ML OF GLUCOSE.
     Route: 041
     Dates: start: 20221002, end: 20221002

REACTIONS (1)
  - Myelosuppression [Recovering/Resolving]

NARRATIVE: CASE EVENT DATE: 20221010
